FAERS Safety Report 9851314 (Version 1)
Quarter: 2014Q1

REPORT INFORMATION
  Report Type: Report from Study
  Country: US (occurrence: US)
  Receive Date: 20140129
  Receipt Date: 20140129
  Transmission Date: 20141002
  Serious: Yes (Hospitalization, Other)
  Sender: FDA-Public Use
  Company Number: US-ROCHE-1339471

PATIENT
  Age: 87 Year
  Sex: Female

DRUGS (11)
  1. LUCENTIS [Suspect]
     Indication: AGE-RELATED MACULAR DEGENERATION
     Dosage: MOST RECENT INJECTION WAS ON 30-DEC-2013.
     Route: 050
     Dates: start: 201302
  2. PROTONIX (OMEPRAZOLE) [Concomitant]
     Route: 065
  3. LEVOTHYROXINE [Concomitant]
     Dosage: EVERY MORNING
     Route: 065
  4. TRENTAL [Concomitant]
     Route: 065
  5. ZYRTEC [Concomitant]
     Indication: RHINORRHOEA
     Dosage: EVERY MORNING
     Route: 065
  6. FISH OIL [Concomitant]
     Route: 065
  7. LUTEIN [Concomitant]
     Route: 065
  8. TYLENOL [Concomitant]
     Route: 065
  9. LIPITOR [Concomitant]
     Dosage: EVERY EVENING
     Route: 065
  10. TUMS [Concomitant]
     Route: 065
  11. LYSINE [Concomitant]
     Route: 065

REACTIONS (3)
  - Cerebrovascular accident [Unknown]
  - Blood urine present [Unknown]
  - Visual acuity reduced [Unknown]
